FAERS Safety Report 24529162 (Version 1)
Quarter: 2024Q4

REPORT INFORMATION
  Report Type: Spontaneous
  Country: US (occurrence: None)
  Receive Date: 20241019
  Receipt Date: 20241019
  Transmission Date: 20250115
  Serious: Yes (Disabling)
  Sender: Public
  Company Number: None

PATIENT
  Age: 22 Year
  Sex: Male
  Weight: 74.25 kg

DRUGS (1)
  1. FINASTERIDE [Suspect]
     Active Substance: FINASTERIDE
     Indication: Alopecia
     Dates: start: 20240220, end: 20240620

REACTIONS (3)
  - Loss of libido [None]
  - Myalgia [None]
  - Erectile dysfunction [None]

NARRATIVE: CASE EVENT DATE: 20240628
